FAERS Safety Report 10159286 (Version 3)
Quarter: 2015Q1

REPORT INFORMATION
  Report Type: Spontaneous
  Country: US (occurrence: None)
  Receive Date: 20140506
  Receipt Date: 20150209
  Transmission Date: 20150720
  Serious: Yes (Life-Threatening, Hospitalization, Other)
  Sender: FDA-Public Use
  Company Number: 2014AP002817

PATIENT
  Age: 25 Year
  Sex: Male
  Weight: 65 kg

DRUGS (2)
  1. FERRIPROX [Suspect]
     Active Substance: DEFERIPRONE
     Indication: TRANSFUSION
     Dates: start: 20131120, end: 20140406
  2. FERRIPROX [Suspect]
     Active Substance: DEFERIPRONE
     Indication: HAEMOCHROMATOSIS
     Dates: start: 20131120, end: 20140406

REACTIONS (4)
  - Cerebrovascular accident [None]
  - Infection [None]
  - Agranulocytosis [None]
  - Thrombocytopenia [None]

NARRATIVE: CASE EVENT DATE: 20140407
